FAERS Safety Report 6907214-7 (Version None)
Quarter: 2010Q3

REPORT INFORMATION
  Report Type: 
  Country: None (occurrence: None)
  Receive Date: 20100804
  Receipt Date: 20100721
  Transmission Date: 20110219
  Serious: Yes (Hospitalization)
  Sender: FDA-Public Use
  Company Number: GB-GENENTECH-304659

PATIENT
  Age: 43 Year
  Sex: Male

DRUGS (14)
  1. RITUXIMAB [Suspect]
     Indication: PRODUCT USED FOR UNKNOWN INDICATION
     Dosage: UNK
     Route: 065
     Dates: start: 20100326
  2. RITUXIMAB [Suspect]
     Dosage: UNK
     Route: 065
  3. CYCLOPHOSPHAMIDE [Suspect]
     Indication: PRODUCT USED FOR UNKNOWN INDICATION
     Dosage: UNK
     Route: 065
     Dates: start: 20100326
  4. CYCLOPHOSPHAMIDE [Suspect]
     Dosage: UNK
     Route: 065
  5. DOXORUBICIN HCL [Suspect]
     Indication: PRODUCT USED FOR UNKNOWN INDICATION
     Dosage: UNK
     Route: 065
     Dates: start: 20100326
  6. DOXORUBICIN HCL [Suspect]
     Dosage: UNK
     Route: 065
  7. PREDNISOLONE [Suspect]
     Indication: PRODUCT USED FOR UNKNOWN INDICATION
     Dosage: UNK
     Route: 065
     Dates: start: 20100326
  8. PREDNISOLONE [Suspect]
     Dosage: UNK
     Route: 065
  9. VINCRISTINE [Suspect]
     Indication: PRODUCT USED FOR UNKNOWN INDICATION
     Dosage: UNK
     Route: 065
  10. VINCRISTINE [Suspect]
     Dosage: UNK
     Route: 065
  11. ZAPONEX [Suspect]
     Indication: PRODUCT USED FOR UNKNOWN INDICATION
     Dosage: 600 MG, UNK
     Route: 048
     Dates: start: 20070510
  12. AMISULPRIDE [Concomitant]
     Indication: PRODUCT USED FOR UNKNOWN INDICATION
     Dosage: 400 MG, UNK
     Route: 048
     Dates: start: 20050101
  13. LANSOPRAZOLE [Concomitant]
     Indication: PRODUCT USED FOR UNKNOWN INDICATION
     Dosage: 15 MG, UNK
     Route: 048
  14. VITAMIN B-12 [Concomitant]
     Indication: PRODUCT USED FOR UNKNOWN INDICATION
     Dosage: UNK
     Route: 030
     Dates: start: 20070101

REACTIONS (3)
  - LEUKOPENIA [None]
  - LYMPHOMA [None]
  - NEUTROPENIA [None]
